FAERS Safety Report 8602066-1 (Version None)
Quarter: 2012Q3

REPORT INFORMATION
  Report Type: 
  Country: None (occurrence: None)
  Receive Date: 20120817
  Receipt Date: 20120809
  Transmission Date: 20120928
  Serious: Yes (Hospitalization)
  Sender: FDA-Public Use
  Company Number: IT-EISAI INC-E7389-02861-CLI-IT

PATIENT
  Sex: Male
  Weight: 84 kg

DRUGS (7)
  1. TRAMADOL HCL [Concomitant]
     Indication: CANCER PAIN
     Dates: start: 20110907
  2. PARACODINA [Concomitant]
     Indication: PRODUCTIVE COUGH
     Dates: start: 20120524
  3. EPIRUBICIN HYDROCHLORIDE [Suspect]
     Indication: NON-SMALL CELL LUNG CANCER
     Route: 041
     Dates: start: 20120703
  4. BIFRIL [Concomitant]
     Indication: PULMONARY ARTERIAL HYPERTENSION
     Dates: start: 20110503
  5. METOCLOPRAMIDE [Concomitant]
     Indication: ANTIEMETIC SUPPORTIVE CARE
     Dates: start: 20120703
  6. SELEPARINA [Concomitant]
     Indication: THROMBOSIS PROPHYLAXIS
     Dates: start: 20120713
  7. DEXAMETHASONE SODIUM PHOSPHATE [Concomitant]
     Indication: SUPPORTIVE CARE
     Dates: start: 20120412

REACTIONS (1)
  - PNEUMONIA [None]
